FAERS Safety Report 18842131 (Version 1)
Quarter: 2021Q1

REPORT INFORMATION
  Report Type: Spontaneous
  Country: US (occurrence: US)
  Receive Date: 20210203
  Receipt Date: 20210203
  Transmission Date: 20210419
  Serious: No
  Sender: FDA-Public Use
  Company Number: US-CUMBERLAND-2021-US-000006

PATIENT
  Age: 60 Year
  Sex: Male

DRUGS (1)
  1. KRISTALOSE [Suspect]
     Active Substance: LACTULOSE

REACTIONS (3)
  - Feeling cold [Unknown]
  - Irritability [Unknown]
  - Malaise [Unknown]
